FAERS Safety Report 7904345-X (Version None)
Quarter: 2011Q4

REPORT INFORMATION
  Report Type: 
  Country: None (occurrence: None)
  Receive Date: 20111109
  Receipt Date: 20111028
  Transmission Date: 20120403
  Serious: Yes (Hospitalization)
  Sender: FDA-Public Use
  Company Number: US-PFIZER INC-2011196829

PATIENT
  Sex: Male
  Weight: 83.81 kg

DRUGS (4)
  1. MIRALAX [Concomitant]
     Indication: CONSTIPATION
     Dosage: 1 PACKET, 1X/DAY
     Route: 048
     Dates: start: 20110817
  2. CRIZOTINIB [Suspect]
     Indication: NON-SMALL CELL LUNG CANCER
     Dosage: 250 MG, 2X/DAY
     Route: 048
     Dates: start: 20110803, end: 20110823
  3. ACETYLSALICYLIC ACID [Concomitant]
     Indication: CARDIOVASCULAR EVENT PROPHYLAXIS
     Dosage: 325 MG, 1X/DAY
     Route: 048
     Dates: start: 20110121, end: 20110824
  4. AMLODIPINE [Concomitant]
     Indication: HYPERTENSION
     Dosage: 5 MG, 1X/DAY
     Route: 048
     Dates: start: 20110121

REACTIONS (1)
  - HAEMOPTYSIS [None]
